FAERS Safety Report 4333912-8 (Version None)
Quarter: 2004Q2

REPORT INFORMATION
  Report Type: 
  Country: None (occurrence: None)
  Receive Date: 20040402
  Receipt Date: 20040402
  Transmission Date: 20050107
  Serious: Yes (Hospitalization)
  Sender: FDA-Public Use
  Company Number: None

PATIENT
  Age: 70 Year
  Sex: Male

DRUGS (12)
  1. CARBOPLATIN [Suspect]
     Indication: BLADDER CANCER
     Dosage: AUC 5
     Dates: start: 20040315
  2. TOPROL-XL [Concomitant]
  3. ACCUPRIL [Concomitant]
  4. LIPITOR [Concomitant]
  5. FERROUS SULFATE TAB [Concomitant]
  6. COMPAZINE [Concomitant]
  7. ZOFRAN [Concomitant]
  8. MEGACE [Concomitant]
  9. ARANESP [Concomitant]
  10. LOMOTIL [Concomitant]
  11. LOVENOX [Concomitant]
  12. ZOLOFT [Concomitant]

REACTIONS (5)
  - ANAEMIA [None]
  - DEHYDRATION [None]
  - FATIGUE [None]
  - RECTAL HAEMORRHAGE [None]
  - THROMBOCYTOPENIA [None]
